FAERS Safety Report 6011585-6 (Version None)
Quarter: 2008Q4

REPORT INFORMATION
  Report Type: 
  Country: None (occurrence: None)
  Receive Date: 20081218
  Receipt Date: 20080916
  Transmission Date: 20090506
  Serious: No
  Sender: FDA-Public Use
  Company Number: US-ASTRAZENECA-2008UW19257

PATIENT
  Age: 82 Year
  Sex: Female
  Weight: 61.2 kg

DRUGS (2)
  1. CRESTOR [Suspect]
     Indication: BLOOD CHOLESTEROL INCREASED
     Dosage: 10 MG
     Route: 048
     Dates: start: 20080501
  2. MECLIZINE [Concomitant]

REACTIONS (3)
  - FATIGUE [None]
  - PAIN IN EXTREMITY [None]
  - SOMNOLENCE [None]
